FAERS Safety Report 10944962 (Version 1)
Quarter: 2015Q1

REPORT INFORMATION
  Report Type: Spontaneous
  Country: GB (occurrence: GB)
  Receive Date: 20150323
  Receipt Date: 20150323
  Transmission Date: 20150721
  Serious: Yes (Other)
  Sender: FDA-Public Use
  Company Number: GB-ABBVIE-15P-167-1364532-00

PATIENT

DRUGS (2)
  1. EPILIM [Suspect]
     Active Substance: VALPROATE SODIUM
     Indication: MATERNAL EXPOSURE TIMING UNSPECIFIED
     Route: 064
  2. EPILIM [Suspect]
     Active Substance: VALPROATE SODIUM
     Route: 063

REACTIONS (4)
  - Foetal exposure during pregnancy [Unknown]
  - Von Willebrand^s disease [Unknown]
  - Exposure during breast feeding [Unknown]
  - Hypothyroidism [Unknown]
